FAERS Safety Report 5472428-2 (Version None)
Quarter: 2007Q4

REPORT INFORMATION
  Report Type: 
  Country: None (occurrence: None)
  Receive Date: 20071001
  Receipt Date: 20070920
  Transmission Date: 20080405
  Serious: Yes (Death, Hospitalization, Other)
  Sender: FDA-Public Use
  Company Number: US-AMGEN-US244594

PATIENT
  Sex: Male
  Weight: 74 kg

DRUGS (6)
  1. PROCRIT [Suspect]
     Indication: ANAEMIA OF MALIGNANT DISEASE
     Route: 065
     Dates: start: 20070509, end: 20070718
  2. FLOMAX [Concomitant]
  3. IRON [Concomitant]
  4. NEULASTA [Concomitant]
  5. TAXOL [Concomitant]
     Dates: start: 20070509, end: 20070718
  6. CARBOPLATIN [Concomitant]
     Dates: start: 20070509, end: 20070718

REACTIONS (2)
  - ANAEMIA [None]
  - DEATH [None]
